FAERS Safety Report 4314549-3 (Version None)
Quarter: 2004Q1

REPORT INFORMATION
  Report Type: 
  Country: None (occurrence: None)
  Receive Date: 20040309
  Receipt Date: 20040224
  Transmission Date: 20041129
  Serious: Yes (Life-Threatening, Hospitalization)
  Sender: FDA-Public Use
  Company Number: WAES 0403DEU00010

PATIENT
  Age: 72 Year
  Sex: Male

DRUGS (9)
  1. ALLOPURINOL [Concomitant]
     Route: 048
  2. AMLODIPINE MALEATE [Concomitant]
     Route: 048
  3. ASPIRIN [Concomitant]
     Route: 048
  4. CARVEDILOL [Concomitant]
     Route: 048
  5. CLOPIDOGREL BISULFATE [Concomitant]
     Route: 048
  6. ZETIA [Suspect]
     Route: 048
     Dates: start: 20030101
  7. FUROSEMIDE [Concomitant]
     Route: 048
  8. OMEPRAZOLE [Concomitant]
     Route: 048
  9. ZOCOR [Suspect]
     Route: 048
     Dates: start: 19960101, end: 20040101

REACTIONS (5)
  - BRADYCARDIA [None]
  - HYPERKALAEMIA [None]
  - RENAL FAILURE [None]
  - RHABDOMYOLYSIS [None]
  - SYNCOPE [None]
